FAERS Safety Report 5989893-4 (Version None)
Quarter: 2008Q4

REPORT INFORMATION
  Report Type: 
  Country: None (occurrence: None)
  Receive Date: 20081209
  Receipt Date: 20081201
  Transmission Date: 20090506
  Serious: Yes (Death, Other)
  Sender: FDA-Public Use
  Company Number: 2008JP004127

PATIENT
  Sex: Female
  Weight: 20 kg

DRUGS (21)
  1. FUNGUARD(MICAFUNGIN INJECTION) [Suspect]
     Indication: INFECTION PROPHYLAXIS
     Dosage: 20 MG, UID/QD, IV DRIP
     Route: 041
     Dates: start: 20071219, end: 20080112
  2. PROGRAF [Suspect]
     Indication: STEM CELL TRANSPLANT
     Dosage: 0.02 MG/KG, /D,
     Dates: start: 20071218, end: 20080520
  3. ALKERAN [Suspect]
     Indication: BONE MARROW CONDITIONING REGIMEN
     Dosage: 120 MG, /D,
     Dates: start: 20071216, end: 20071217
  4. VEPESID(ETOPOSIDE) INJECTION [Suspect]
     Indication: BONE MARROW CONDITIONING REGIMEN
     Dosage: 174 MG,  /D,
     Dates: start: 20071216, end: 20071217
  5. SOLU-MEDROL [Suspect]
     Dosage: 40 MG, /D,
     Dates: start: 20080111
  6. FUNGIZONE SYRUP [Concomitant]
  7. FUNGIZONE [Concomitant]
  8. FLUDARABINE PHOSPHATE [Concomitant]
  9. THYMOGLOBULIN (ANTITHYMOCYTE IMMUNOGLUBULIN) INJECTION [Concomitant]
  10. METHOTREXATE [Concomitant]
  11. CARBENIN (BETAMIPRON, PANIPENEM) INJECTION [Concomitant]
  12. SANDOSTATIN (OCTREOTIDE) INJECTION [Concomitant]
  13. GASTER INJECTION [Concomitant]
  14. MEROPEN (MEROPENEM) INJECTION [Concomitant]
  15. TARGOCID [Concomitant]
  16. FIRSTCIN (CEFOZOPRAN HYDROCHLORIDE) [Concomitant]
  17. PREDNISOLONE [Concomitant]
  18. ALOSITOL [Concomitant]
  19. CONIEL (BENDIPINE HYDROCHLORIDE) [Concomitant]
  20. URSO 250 [Concomitant]
  21. FOSCAVIR [Concomitant]

REACTIONS (9)
  - DIARRHOEA [None]
  - ENCEPHALOPATHY [None]
  - HAEMATURIA [None]
  - HYPERTENSION [None]
  - JAUNDICE [None]
  - MUCOSAL INFLAMMATION [None]
  - MULTI-ORGAN FAILURE [None]
  - NEUROBLASTOMA RECURRENT [None]
  - RASH [None]
